FAERS Safety Report 11346647 (Version 1)
Quarter: 2015Q3

REPORT INFORMATION
  Report Type: Spontaneous
  Country: US (occurrence: US)
  Receive Date: 20150803
  Receipt Date: 20150803
  Transmission Date: 20151125
  Serious: No
  Sender: FDA-Public Use
  Company Number: US-ELI_LILLY_AND_COMPANY-US201009006809

PATIENT
  Age: 65 Year
  Sex: Male
  Weight: 77.1 kg

DRUGS (4)
  1. ZYPREXA [Suspect]
     Active Substance: OLANZAPINE
     Dosage: 10 MG, UNK
     Dates: start: 201002
  2. WELLBUTRIN [Concomitant]
     Active Substance: BUPROPION HYDROCHLORIDE
     Dosage: 150 MG, DAILY (1/D)
  3. ZYPREXA [Suspect]
     Active Substance: OLANZAPINE
     Dosage: UNK, OTHER
  4. CLONAZEPAM. [Concomitant]
     Active Substance: CLONAZEPAM
     Dosage: 2 D/F, DAILY (1/D)

REACTIONS (9)
  - Insomnia [Unknown]
  - Posture abnormal [Unknown]
  - Bradykinesia [Unknown]
  - Parkinsonism [Unknown]
  - Sedation [Unknown]
  - Masked facies [Unknown]
  - Tremor [Recovered/Resolved]
  - Speech disorder [Unknown]
  - Gait disturbance [Unknown]

NARRATIVE: CASE EVENT DATE: 20101105
